FAERS Safety Report 6406449-X (Version None)
Quarter: 2009Q4

REPORT INFORMATION
  Report Type: 
  Country: None (occurrence: None)
  Receive Date: 20091014
  Receipt Date: 20091002
  Transmission Date: 20100525
  Serious: Yes (Other)
  Sender: FDA-Public Use
  Company Number: 2009SP021504

PATIENT
  Age: 64 Year
  Sex: Female

DRUGS (9)
  1. CORICIDIN HBP CHEST CONGESTION + COUGH (DEXTROMETHORPHAN HYDROBROMIDE/ [Suspect]
     Indication: COUGH
     Dosage: 2 MG;ONCE;PO
     Route: 048
     Dates: start: 20090815
  2. CORICIDIN HBP CHEST CONGESTION + COUGH (DEXTROMETHORPHAN HYDROBROMIDE/ [Suspect]
     Indication: FEELING COLD
     Dosage: 2 MG;ONCE;PO
     Route: 048
     Dates: start: 20090815
  3. CORICIDIN HBP CHEST CONGESTION + COUGH (DEXTROMETHORPHAN HYDROBROMIDE/ [Suspect]
     Indication: PYREXIA
     Dosage: 2 MG;ONCE;PO
     Route: 048
     Dates: start: 20090815
  4. FENTANYL TRANSDERMAL SYSTEM [Suspect]
     Indication: DRUG USE FOR UNKNOWN INDICATION
  5. VICODIN [Suspect]
     Indication: DRUG USE FOR UNKNOWN INDICATION
  6. JANUVIA [Suspect]
     Indication: DRUG USE FOR UNKNOWN INDICATION
  7. HYZAAR [Concomitant]
  8. LOPRESSOR [Concomitant]
  9. ZOCAR [Concomitant]

REACTIONS (4)
  - DRUG INTERACTION [None]
  - EYE ROLLING [None]
  - LOSS OF CONSCIOUSNESS [None]
  - MEMORY IMPAIRMENT [None]
